FAERS Safety Report 19725144 (Version 3)
Quarter: 2021Q3

REPORT INFORMATION
  Report Type: Spontaneous
  Country: FR (occurrence: FR)
  Receive Date: 20210820
  Receipt Date: 20210930
  Transmission Date: 20211014
  Serious: Yes (Disabling, Other)
  Sender: FDA-Public Use
  Company Number: FR-SHILPA MEDICARE LIMITED-SML-FR-2021-00994

PATIENT
  Age: 74 Year
  Sex: Male

DRUGS (13)
  1. TARKA [Suspect]
     Active Substance: TRANDOLAPRIL\VERAPAMIL HYDROCHLORIDE
     Indication: HYPERTENSION
     Dosage: 1 DF, QD
     Route: 048
  2. TRANDOLAPRIL. [Suspect]
     Active Substance: TRANDOLAPRIL
     Indication: HYPERTENSION
     Dosage: 2 MG, ONCE DAILY
     Route: 048
  3. TAMSULOSIN HYDROCHLORIDE. [Suspect]
     Active Substance: TAMSULOSIN HYDROCHLORIDE
     Indication: BENIGN PROSTATIC HYPERPLASIA
     Dosage: 0.4 MG, ONCE DAILY
     Route: 048
  4. TARKA [Suspect]
     Active Substance: TRANDOLAPRIL\VERAPAMIL HYDROCHLORIDE
     Route: 048
  5. BRINTELLIX [Suspect]
     Active Substance: VORTIOXETINE HYDROBROMIDE
     Indication: DEPRESSION
     Dosage: 10 MG, QD
     Route: 065
  6. TRIMBOW [Suspect]
     Active Substance: BECLOMETHASONE DIPROPIONATE\FORMOTEROL FUMARATE\GLYCOPYRROLATE
     Indication: BRONCHIAL DISORDER
     Dosage: 2 DF, UNKNOWN FREQ.
     Route: 055
  7. GLIVEC [Suspect]
     Active Substance: IMATINIB MESYLATE
     Indication: CHRONIC MYELOID LEUKAEMIA
     Route: 048
     Dates: start: 2013
  8. IMATINIB, UNKNOWN [Suspect]
     Active Substance: IMATINIB
     Indication: CHRONIC MYELOID LEUKAEMIA
     Dosage: UNK UNK, UNKNOWN FREQ. (REDUCED DOSE)
     Route: 048
     Dates: start: 2013
  9. KARDEGIC [Suspect]
     Active Substance: ASPIRIN DL-LYSINE
     Indication: PROPHYLAXIS
     Dosage: 1 DF, UNKNOWN FREQ.
     Route: 048
  10. LASILIX [Suspect]
     Active Substance: FUROSEMIDE
     Indication: HYPERTENSION
     Dosage: 800 MG, ONCE DAILY
     Route: 048
  11. VENTOLINE [Suspect]
     Active Substance: ALBUTEROL
     Indication: BRONCHIAL DISORDER
     Dosage: UNK UNK, UNKNOWN FREQ.
     Route: 055
  12. VERAPAMIL HYDROCHLORIDE, TRANDOLAPRIL [Suspect]
     Active Substance: TRANDOLAPRIL\VERAPAMIL HYDROCHLORIDE
     Indication: HYPERTENSION
     Route: 048
  13. SALBUTAMOL [Suspect]
     Active Substance: ALBUTEROL
     Indication: BRONCHIAL DISORDER
     Route: 055

REACTIONS (1)
  - Arterial disorder [Not Recovered/Not Resolved]

NARRATIVE: CASE EVENT DATE: 202102
